FAERS Safety Report 25281174 (Version 1)
Quarter: 2025Q2

REPORT INFORMATION
  Report Type: Spontaneous
  Country: CH (occurrence: CH)
  Receive Date: 20250508
  Receipt Date: 20250508
  Transmission Date: 20250716
  Serious: Yes (Death, Life-Threatening, Hospitalization, Other)
  Sender: ABBVIE
  Company Number: CH-ABBVIE-6251739

PATIENT
  Age: 76 Year
  Sex: Female

DRUGS (1)
  1. BOTOX [Suspect]
     Active Substance: ONABOTULINUMTOXINA
     Indication: Oesophageal spasm
     Route: 030

REACTIONS (5)
  - Haemorrhage [Fatal]
  - Chest pain [Unknown]
  - Circulatory collapse [Unknown]
  - Vascular pseudoaneurysm [Unknown]
  - Aorto-oesophageal fistula [Unknown]
